FAERS Safety Report 5028136-5 (Version None)
Quarter: 2006Q2

REPORT INFORMATION
  Report Type: 
  Country: None (occurrence: None)
  Receive Date: 20060613
  Receipt Date: 20060523
  Transmission Date: 20061013
  Serious: Yes (Life-Threatening, Hospitalization)
  Sender: FDA-Public Use
  Company Number: 2004SP000320

PATIENT
  Age: 39 Year
  Sex: Male
  Weight: 85.2762 kg

DRUGS (3)
  1. LEVALBUTEROL MDI-HFA (TARTRATE) (90 UG) [Suspect]
     Indication: ASTHMA
     Dosage: 90 UG; QID; INHALATION
     Route: 055
     Dates: start: 20040305
  2. TYLENOL (CAPLET) [Concomitant]
  3. CLARITIN [Concomitant]

REACTIONS (12)
  - ACTIVATED PARTIAL THROMBOPLASTIN TIME PROLONGED [None]
  - ASTHMA [None]
  - ATELECTASIS [None]
  - FACIAL BONES FRACTURE [None]
  - INTERNATIONAL NORMALISED RATIO INCREASED [None]
  - JAW FRACTURE [None]
  - LACERATION [None]
  - PLEURAL EFFUSION [None]
  - PROTHROMBIN TIME PROLONGED [None]
  - PULMONARY EMBOLISM [None]
  - ROAD TRAFFIC ACCIDENT [None]
  - SWELLING FACE [None]
